FAERS Safety Report 5627703-5 (Version None)
Quarter: 2008Q1

REPORT INFORMATION
  Report Type: 
  Country: None (occurrence: None)
  Receive Date: 20080214
  Receipt Date: 20080214
  Transmission Date: 20080703
  Serious: Yes (Life-Threatening, Hospitalization)
  Sender: FDA-Public Use
  Company Number: None

PATIENT
  Age: 66 Year
  Sex: Female
  Weight: 108.8633 kg

DRUGS (1)
  1. LISINOPRIL [Suspect]
     Indication: CARDIAC FAILURE
     Dosage: DLY PO
     Route: 048

REACTIONS (3)
  - ANGIOEDEMA [None]
  - OEDEMA MOUTH [None]
  - SWOLLEN TONGUE [None]
